FAERS Safety Report 6272121-2 (Version None)
Quarter: 2009Q3

REPORT INFORMATION
  Report Type: 
  Country: None (occurrence: None)
  Receive Date: 20090717
  Receipt Date: 20071029
  Transmission Date: 20100115
  Serious: Yes (Other)
  Sender: FDA-Public Use
  Company Number: US-PFIZER INC-2007067649

PATIENT
  Sex: Male

DRUGS (3)
  1. BLINDED *NO SUBJECT DRUG [Suspect]
     Dosage: UNK
     Dates: end: 20050712
  2. BLINDED *PLACEBO [Suspect]
     Dosage: UNK
     Dates: end: 20050712
  3. BLINDED MARAVIROC [Suspect]
     Dosage: UNK
     Dates: end: 20050712

REACTIONS (1)
  - MYOCARDIAL INFARCTION [None]
